FAERS Safety Report 11254928 (Version 1)
Quarter: 2015Q3

REPORT INFORMATION
  Report Type: Spontaneous
  Country: US (occurrence: US)
  Receive Date: 20150709
  Receipt Date: 20150709
  Transmission Date: 20151125
  Serious: Yes (Other)
  Sender: FDA-Public Use
  Company Number: US-MPIJNJ-2012-03515

PATIENT
  Sex: Male

DRUGS (6)
  1. REVLIMID [Suspect]
     Active Substance: LENALIDOMIDE
     Indication: PLASMA CELL MYELOMA
     Dosage: 10 MG, QD
     Route: 048
     Dates: start: 200705
  2. REVLIMID [Suspect]
     Active Substance: LENALIDOMIDE
     Dosage: UNK
     Route: 048
     Dates: start: 200812
  3. VELCADE [Suspect]
     Active Substance: BORTEZOMIB
     Indication: PRODUCT USED FOR UNKNOWN INDICATION
  4. REVLIMID [Suspect]
     Active Substance: LENALIDOMIDE
     Dosage: 12.5 MG, BID
     Dates: start: 20120104
  5. REVLIMID [Suspect]
     Active Substance: LENALIDOMIDE
     Dosage: 10 MG, QD
     Dates: start: 200802
  6. REVLIMID [Suspect]
     Active Substance: LENALIDOMIDE
     Dosage: 25 MG, QD
     Dates: start: 201112

REACTIONS (3)
  - Neuropathy peripheral [Unknown]
  - Platelet count decreased [Unknown]
  - White blood cell count decreased [Unknown]
